FAERS Safety Report 20807681 (Version 1)
Quarter: 2022Q2

REPORT INFORMATION
  Report Type: Spontaneous
  Country: US (occurrence: None)
  Receive Date: 20220509
  Receipt Date: 20220509
  Transmission Date: 20220720
  Serious: No
  Sender: FDA-Public Use
  Company Number: None

PATIENT
  Age: 71 Year
  Sex: Male
  Weight: 137 kg

DRUGS (2)
  1. PRAZOSIN HYDROCHLORIDE [Suspect]
     Active Substance: PRAZOSIN HYDROCHLORIDE
     Indication: Post-traumatic stress disorder
     Dates: start: 20211004, end: 20220126
  2. PRAZOSIN HYDROCHLORIDE [Suspect]
     Active Substance: PRAZOSIN HYDROCHLORIDE
     Indication: Nightmare

REACTIONS (3)
  - Irritability [None]
  - Abnormal behaviour [None]
  - Mania [None]

NARRATIVE: CASE EVENT DATE: 20220126
